FAERS Safety Report 6511105-3 (Version None)
Quarter: 2009Q4

REPORT INFORMATION
  Report Type: 
  Country: None (occurrence: None)
  Receive Date: 20091222
  Receipt Date: 20091211
  Transmission Date: 20100525
  Serious: Yes (Life-Threatening, Disabling)
  Sender: FDA-Public Use
  Company Number: AU-ELI_LILLY_AND_COMPANY-AU200910004074

PATIENT
  Sex: Female

DRUGS (8)
  1. CYMBALTA [Suspect]
     Indication: MAJOR DEPRESSION
     Dosage: 30 MG, UNKNOWN
     Route: 065
     Dates: start: 20090922, end: 20090901
  2. CYMBALTA [Suspect]
     Dosage: 60 MG, UNKNOWN
     Route: 065
     Dates: start: 20090927, end: 20091102
  3. TOPAMAX [Concomitant]
     Dosage: 100, UNKNOWN
     Route: 065
  4. GLUCOSAMINE [Concomitant]
     Dosage: UNK, UNKNOWN
     Route: 065
  5. ENDEP [Concomitant]
     Indication: MIGRAINE
     Dosage: 25 MG, UNKNOWN
     Route: 065
  6. MOTILIUM [Concomitant]
     Dosage: UNK, UNKNOWN
     Route: 065
  7. NEXIUM [Concomitant]
     Dosage: UNK, UNKNOWN
     Route: 065
  8. NUROFEN [Concomitant]
     Dosage: UNK, UNKNOWN
     Route: 065

REACTIONS (1)
  - EPILEPSY [None]
